FAERS Safety Report 17365383 (Version 1)
Quarter: 2020Q1

REPORT INFORMATION
  Report Type: Report from Study
  Country: IT (occurrence: IT)
  Receive Date: 20200204
  Receipt Date: 20200204
  Transmission Date: 20200409
  Serious: Yes (Other)
  Sender: FDA-Public Use
  Company Number: IT-ACCORD-155781

PATIENT
  Age: 61 Year
  Sex: Female

DRUGS (3)
  1. FLUOROURACIL. [Suspect]
     Active Substance: FLUOROURACIL
     Indication: COLON CANCER
     Dates: start: 20181101
  2. OXALIPLATIN KABI [Suspect]
     Active Substance: OXALIPLATIN
     Indication: COLON CANCER
     Dates: start: 20181101
  3. ZARZIO [Concomitant]
     Active Substance: FILGRASTIM
     Dosage: STRENGTH: 30 MU / 0.5 ML, SOLUTION FOR INJECTION OR INFUSION IN PRE-FILLED S

REACTIONS (5)
  - Dysgeusia [Unknown]
  - Thrombocytopenia [Unknown]
  - Nausea [Unknown]
  - Paraesthesia [Unknown]
  - Hypersensitivity [Unknown]

NARRATIVE: CASE EVENT DATE: 20181201
